FAERS Safety Report 14844145 (Version 3)
Quarter: 2018Q3

REPORT INFORMATION
  Report Type: Spontaneous
  Country: CA (occurrence: CA)
  Receive Date: 20180503
  Receipt Date: 20180816
  Transmission Date: 20181010
  Serious: Yes (Hospitalization)
  Sender: FDA-Public Use
  Company Number: CA-PFIZER INC-2017241596

PATIENT
  Age: 55 Year
  Sex: Female

DRUGS (19)
  1. FASLODEX [Concomitant]
     Active Substance: FULVESTRANT
     Dosage: UNK
  2. EXEMESTANE. [Concomitant]
     Active Substance: EXEMESTANE
     Dosage: 25 MG, 1X/DAY
  3. PAMIDRONATE [Concomitant]
     Active Substance: PAMIDRONATE DISODIUM
     Dosage: UNK, EVERY 3 MONTHS
     Route: 042
  4. IBRANCE [Suspect]
     Active Substance: PALBOCICLIB
     Indication: BREAST CANCER METASTATIC
     Dosage: 125 MG, CYCLIC (1X/DAY WITH FOOD ON DAYS 1 TO 21 THEN 7 DAYS OFF)
     Route: 048
     Dates: start: 20170626
  5. IBRANCE [Suspect]
     Active Substance: PALBOCICLIB
     Dosage: 100 MG, CYCLIC (1X/DAY WITH FOOD ON DAYS 1 TO 21 THEN 7 DAYS OFF)
     Route: 048
  6. METONIA [Concomitant]
     Active Substance: METOCLOPRAMIDE
     Dosage: 5 MG, 2 TABLETS (DF), 4 TIMES A DAY
  7. BENADRYL [Concomitant]
     Active Substance: DIPHENHYDRAMINE HYDROCHLORIDE
     Dosage: UNK
  8. ONDANSETRONE ACCORD HEALTHCARE [Concomitant]
     Dosage: 8 MG, UNK
  9. GRAVOL [Concomitant]
     Active Substance: DIMENHYDRINATE
     Dosage: UNK
  10. CALCIUM [Concomitant]
     Active Substance: CALCIUM
     Dosage: UNK
  11. FENTANYL. [Concomitant]
     Active Substance: FENTANYL
     Dosage: 500 UG (PATCH) CYCLIC (EVERY 48 HOURS)
  12. MARIJUANA [Concomitant]
     Active Substance: CANNABIS SATIVA SUBSP. INDICA TOP
     Dosage: UNK
  13. IBRANCE [Suspect]
     Active Substance: PALBOCICLIB
     Dosage: 75 MG, CYCLIC (ONCE A DAY WITH FOOD ON DAYS 1 TO 21 THEN 7 DAYS OFF
     Route: 048
  14. RABEPRAZOLE [Concomitant]
     Active Substance: RABEPRAZOLE
     Dosage: 20 MG, 1X/DAY
  15. METADOL [Concomitant]
     Dosage: 2 DF (TABLETS), 2X/DAY
  16. KETAMINE [Concomitant]
     Active Substance: KETAMINE
     Dosage: 2 X 25 UNITS, 2?3 TIMES PER DAY
  17. CLONAZEPAM. [Concomitant]
     Active Substance: CLONAZEPAM
     Dosage: 0.5 MG, 2X/DAY
  18. VITAMIN D [Concomitant]
     Active Substance: CHOLECALCIFEROL
     Dosage: UNK
  19. CORTEF [Concomitant]
     Active Substance: HYDROCORTISONE
     Dosage: 10 MG, UNK

REACTIONS (7)
  - Fatigue [Unknown]
  - Nausea [Unknown]
  - Vomiting [Unknown]
  - Pain [Unknown]
  - Oral pain [Unknown]
  - Anxiety [Unknown]
  - Product use in unapproved indication [Unknown]
